FAERS Safety Report 5633547-0 (Version None)
Quarter: 2008Q1

REPORT INFORMATION
  Report Type: 
  Country: None (occurrence: None)
  Receive Date: 20080221
  Receipt Date: 20080208
  Transmission Date: 20080703
  Serious: Yes (Hospitalization)
  Sender: FDA-Public Use
  Company Number: JP-ROCHE-538972

PATIENT
  Age: 26 Year
  Sex: Male

DRUGS (2)
  1. TAMIFLU [Suspect]
     Route: 048
     Dates: start: 20071228, end: 20071228
  2. ACETAMINOPHEN [Concomitant]
     Route: 048
     Dates: start: 20071228, end: 20071228

REACTIONS (1)
  - ALTERED STATE OF CONSCIOUSNESS [None]
